FAERS Safety Report 7328301-8 (Version None)
Quarter: 2011Q1

REPORT INFORMATION
  Report Type: 
  Country: None (occurrence: None)
  Receive Date: 20110303
  Receipt Date: 20110217
  Transmission Date: 20110831
  Serious: Yes (Life-Threatening, Other)
  Sender: FDA-Public Use
  Company Number: IT-MYLANLABS-2011S1003278

PATIENT
  Age: 44 Year
  Sex: Female

DRUGS (8)
  1. FENTANYL CITRATE [Suspect]
     Indication: GENERAL ANAESTHESIA
     Dates: start: 20110209, end: 20110209
  2. SEVOFLURANE [Suspect]
     Indication: GENERAL ANAESTHESIA
     Dates: start: 20110209, end: 20110209
  3. MIDAZOLAM HCL [Suspect]
     Indication: GENERAL ANAESTHESIA
     Dates: start: 20110209, end: 20110209
  4. VECURONIUM BROMIDE [Suspect]
     Indication: GENERAL ANAESTHESIA
     Dates: start: 20110209, end: 20110209
  5. PROPOFOL [Suspect]
     Indication: GENERAL ANAESTHESIA
     Dates: start: 20110209, end: 20110209
  6. ULTIVA [Suspect]
     Indication: GENERAL ANAESTHESIA
     Dates: start: 20110209, end: 20110209
  7. VANCOMYCIN HYDROCHLORIDE [Suspect]
     Dates: start: 20110209, end: 20110209
  8. CEFTRIAXONE SODIUM [Suspect]
     Indication: GENERAL ANAESTHESIA
     Route: 042
     Dates: start: 20110209, end: 20110209

REACTIONS (2)
  - URTICARIA [None]
  - WHEEZING [None]
